FAERS Safety Report 24196401 (Version 1)
Quarter: 2024Q3

REPORT INFORMATION
  Report Type: Spontaneous
  Country: US (occurrence: US)
  Receive Date: 20240810
  Receipt Date: 20240810
  Transmission Date: 20241017
  Serious: Yes (Hospitalization, Other)
  Sender: APOTEX
  Company Number: US-APOTEX-2024AP009126

PATIENT
  Age: 58 Year
  Sex: Male

DRUGS (3)
  1. APIXABAN [Suspect]
     Active Substance: APIXABAN
     Indication: Product used for unknown indication
     Dosage: UNK
     Route: 065
  2. BACLOFEN [Suspect]
     Active Substance: BACLOFEN
     Indication: Product used for unknown indication
     Dosage: UNK
     Route: 065
  3. METOPROLOL [Suspect]
     Active Substance: METOPROLOL
     Indication: Product used for unknown indication
     Dosage: UNK
     Route: 065

REACTIONS (11)
  - Electrocardiogram QT prolonged [Recovering/Resolving]
  - Hypothermia [Recovering/Resolving]
  - Ictal bradycardia syndrome [Recovering/Resolving]
  - Neutrophilia [Recovering/Resolving]
  - Somnolence [Recovering/Resolving]
  - Intentional overdose [Recovering/Resolving]
  - Leukocytosis [Recovering/Resolving]
  - Areflexia [Recovering/Resolving]
  - Electroencephalogram abnormal [Recovering/Resolving]
  - Sinus bradycardia [Recovering/Resolving]
  - Hypotension [Recovering/Resolving]
